FAERS Safety Report 9870929 (Version 2)
Quarter: 2014Q1

REPORT INFORMATION
  Report Type: Spontaneous
  Country: US (occurrence: US)
  Receive Date: 20140205
  Receipt Date: 20140317
  Transmission Date: 20141002
  Serious: Yes (Disabling)
  Sender: FDA-Public Use
  Company Number: US-PFIZER INC-2014032756

PATIENT
  Sex: Female

DRUGS (4)
  1. NEURONTIN [Suspect]
     Indication: DIABETIC NEUROPATHY
     Dosage: 900 MG, 3X/DAY
     Route: 048
     Dates: start: 2008
  2. HUMALOG [Concomitant]
     Indication: DIABETES MELLITUS
     Dosage: 36 IU, 3X/DAY
  3. LANTUS [Concomitant]
     Indication: DIABETES MELLITUS
     Dosage: 56 IU, 2X/DAY
  4. NITROSTAT [Concomitant]
     Indication: CHEST PAIN
     Dosage: 24 MG, AS NEEDED

REACTIONS (3)
  - Mental disorder [Unknown]
  - Depression [Unknown]
  - Post-traumatic stress disorder [Unknown]
